FAERS Safety Report 7096476-4 (Version None)
Quarter: 2010Q4

REPORT INFORMATION
  Report Type: 
  Country: None (occurrence: None)
  Receive Date: 20101111
  Receipt Date: 20101109
  Transmission Date: 20110411
  Serious: Yes (Hospitalization)
  Sender: FDA-Public Use
  Company Number: AT-AMGEN-KDC420728

PATIENT

DRUGS (1)
  1. PANITUMUMAB [Suspect]
     Indication: SQUAMOUS CELL CARCINOMA
     Dosage: 639 MG, UNK
     Route: 042
     Dates: start: 20100526

REACTIONS (9)
  - BLOOD SODIUM INCREASED [None]
  - BRONCHITIS [None]
  - CONVULSION [None]
  - HAEMOGLOBIN DECREASED [None]
  - MONOCYTE PERCENTAGE INCREASED [None]
  - MYOCLONIC EPILEPSY [None]
  - RED BLOOD CELL COUNT DECREASED [None]
  - RETICULOCYTE PERCENTAGE INCREASED [None]
  - VOMITING [None]
